FAERS Safety Report 14480574 (Version 3)
Quarter: 2018Q3

REPORT INFORMATION
  Report Type: Report from Study
  Country: PA (occurrence: PA)
  Receive Date: 20180202
  Receipt Date: 20180915
  Transmission Date: 20181010
  Serious: Yes (Death, Other)
  Sender: FDA-Public Use
  Company Number: PHHY2018PA015081

PATIENT
  Age: 46 Year
  Sex: Female

DRUGS (4)
  1. AFINITOR [Suspect]
     Active Substance: EVEROLIMUS
     Indication: COLON CANCER
     Dosage: 5 MG, QD
     Route: 065
  2. AFINITOR [Suspect]
     Active Substance: EVEROLIMUS
     Indication: BREAST CANCER
     Dosage: 0.5 DF, QD
     Route: 065
  3. EXEMESTANE. [Concomitant]
     Active Substance: EXEMESTANE
     Indication: PRODUCT USED FOR UNKNOWN INDICATION
     Dosage: UNK UNK, QD (EVERY DAY)
     Route: 065
  4. AFINITOR [Suspect]
     Active Substance: EVEROLIMUS
     Dosage: 10 MG, QD
     Route: 065

REACTIONS (10)
  - Hepatic lesion [Unknown]
  - Breast cancer [Unknown]
  - Chapped lips [Unknown]
  - Hypertension [Unknown]
  - Pain [Unknown]
  - Colon cancer [Unknown]
  - Haemoglobin decreased [Unknown]
  - Wrong technique in product usage process [Not Recovered/Not Resolved]
  - Death [Fatal]
  - Malignant neoplasm progression [Unknown]

NARRATIVE: CASE EVENT DATE: 201807
